FAERS Safety Report 6015572-3 (Version None)
Quarter: 2008Q4

REPORT INFORMATION
  Report Type: 
  Country: None (occurrence: None)
  Receive Date: 20081222
  Receipt Date: 20081210
  Transmission Date: 20090506
  Serious: Yes (Death)
  Sender: FDA-Public Use
  Company Number: DE-PFIZER INC-2008152240

PATIENT

DRUGS (9)
  1. BLINDED *PLACEBO [Suspect]
     Indication: NON-SMALL CELL LUNG CANCER
     Dosage: 37.5 MG, 1X/DAY
     Route: 048
     Dates: start: 20080702, end: 20080724
  2. BLINDED SUNITINIB MALATE [Suspect]
     Indication: NON-SMALL CELL LUNG CANCER
     Dosage: 37.5 MG, 1X/DAY
     Route: 048
     Dates: start: 20080702, end: 20080724
  3. *ERLOTINIB [Suspect]
     Dosage: 150 MG, 1X/DAY
     Route: 048
     Dates: start: 20080702, end: 20080730
  4. RAMIPRIL [Concomitant]
     Dosage: UNK
     Route: 048
     Dates: start: 20080101
  5. METOPROLOL [Concomitant]
     Dosage: UNK
     Route: 048
     Dates: start: 20080101
  6. ESOMEPRAZOLE [Concomitant]
     Dosage: UNK
     Route: 048
     Dates: start: 20080101
  7. TORASEMIDE [Concomitant]
     Dosage: UNK
     Route: 048
     Dates: start: 20080723
  8. DIOVAN HCT [Concomitant]
     Dosage: UNK
     Route: 048
     Dates: start: 20080101, end: 20080724
  9. AMLODIPINE [Concomitant]
     Dosage: UNK
     Route: 048
     Dates: start: 20080101

REACTIONS (2)
  - HYPERTENSION [None]
  - RESPIRATORY FAILURE [None]
